FAERS Safety Report 5508942-0 (Version None)
Quarter: 2007Q4

REPORT INFORMATION
  Report Type: 
  Country: None (occurrence: None)
  Receive Date: 20071031
  Receipt Date: 20070809
  Transmission Date: 20080405
  Serious: No
  Sender: FDA-Public Use
  Company Number: 2007PV033275

PATIENT
  Age: 60 Year
  Sex: Female

DRUGS (4)
  1. SYMLIN [Suspect]
     Indication: TYPE 2 DIABETES MELLITUS
     Dosage: 150 MCG; TID; SC, SC
     Route: 058
     Dates: start: 20070712, end: 20070806
  2. SYMLIN [Suspect]
     Indication: TYPE 2 DIABETES MELLITUS
     Dosage: 150 MCG; TID; SC, SC
     Route: 058
     Dates: start: 20070807
  3. NOVOLOG [Concomitant]
  4. HUMULIN 70/30 [Concomitant]

REACTIONS (1)
  - NAUSEA [None]
